FAERS Safety Report 6627621-X (Version None)
Quarter: 2010Q1

REPORT INFORMATION
  Report Type: 
  Country: None (occurrence: None)
  Receive Date: 20100311
  Receipt Date: 20100122
  Transmission Date: 20100710
  Serious: No
  Sender: FDA-Public Use
  Company Number: US-KINGPHARMUSA00001-K201000092

PATIENT
  Sex: Female
  Weight: 86.621 kg

DRUGS (7)
  1. EMBEDA [Suspect]
     Indication: BACK PAIN
     Dosage: 20 MG, EVERY 12 HOURS
     Route: 048
     Dates: start: 20100113, end: 20100114
  2. EMBEDA [Suspect]
     Indication: ARTHRALGIA
  3. EMBEDA [Suspect]
     Indication: PAIN IN EXTREMITY
  4. MELOXICAM [Concomitant]
     Indication: PAIN
     Dosage: 7.5 MG, BID
     Route: 048
  5. PERCOCET [Concomitant]
     Indication: PAIN
     Dosage: 10/325, EVERY 8 HOURS
  6. CYCLOBENZAPRINE [Concomitant]
     Indication: PAIN
     Dosage: 5 MG, QHS
     Route: 048
  7. BIRTH CONTROL PILLS [Concomitant]
     Indication: CONTRACEPTION

REACTIONS (1)
  - HEADACHE [None]
